FAERS Safety Report 10467742 (Version 6)
Quarter: 2015Q3

REPORT INFORMATION
  Report Type: Spontaneous
  Country: US (occurrence: US)
  Receive Date: 20140922
  Receipt Date: 20150720
  Transmission Date: 20151125
  Serious: Yes (Hospitalization, Disabling, Other)
  Sender: FDA-Public Use
  Company Number: US-MERCK-1409USA010443

PATIENT
  Sex: Female
  Weight: 80.73 kg

DRUGS (5)
  1. FOSAMAX PLUS D [Suspect]
     Active Substance: ALENDRONATE SODIUM\CHOLECALCIFEROL
     Indication: OSTEOPENIA
     Dosage: 70 MG/2800 IU, UNK
     Route: 048
     Dates: start: 20060320, end: 2012
  2. FOSAMAX [Suspect]
     Active Substance: ALENDRONATE SODIUM
     Dosage: 70 MG, UNK
     Route: 048
     Dates: start: 20060103, end: 2012
  3. ALENDRONATE SODIUM. [Suspect]
     Active Substance: ALENDRONATE SODIUM
     Indication: OSTEOPENIA
     Dosage: UNK
     Route: 048
     Dates: start: 1999, end: 20120730
  4. ALENDRONATE SODIUM. [Suspect]
     Active Substance: ALENDRONATE SODIUM
     Dosage: 70 MG, UNK
     Route: 048
     Dates: start: 20090110, end: 2012
  5. FOSAMAX [Suspect]
     Active Substance: ALENDRONATE SODIUM
     Indication: OSTEOPENIA
     Dosage: 10 MG, UNK
     Route: 048
     Dates: start: 1999, end: 20060103

REACTIONS (9)
  - Medical device pain [Unknown]
  - Diabetes mellitus [Unknown]
  - Femur fracture [Recovered/Resolved]
  - Medical device removal [Unknown]
  - Hypertension [Unknown]
  - Varicose vein [Unknown]
  - Intramedullary rod insertion [Unknown]
  - Osteonecrosis of jaw [Not Recovered/Not Resolved]
  - Hyperparathyroidism [Unknown]

NARRATIVE: CASE EVENT DATE: 2009
